FAERS Safety Report 25674320 (Version 2)
Quarter: 2025Q3

REPORT INFORMATION
  Report Type: Spontaneous
  Country: IN (occurrence: IN)
  Receive Date: 20250813
  Receipt Date: 20250815
  Transmission Date: 20251021
  Serious: Yes (Life-Threatening)
  Sender: GE HEALTHCARE
  Company Number: IN-GE HEALTHCARE-2025CSU010926

PATIENT
  Age: 77 Year
  Sex: Male
  Weight: 58 kg

DRUGS (1)
  1. OMNIPAQUE [Suspect]
     Active Substance: IOHEXOL
     Indication: Computerised tomogram abdomen
     Route: 065
     Dates: start: 20250731, end: 20250731

REACTIONS (3)
  - Tachycardia [Recovered/Resolved]
  - Dyspnoea [Recovered/Resolved]
  - Chills [Recovered/Resolved]

NARRATIVE: CASE EVENT DATE: 20250731
